FAERS Safety Report 21473431 (Version 4)
Quarter: 2022Q4

REPORT INFORMATION
  Report Type: Report from Study
  Country: US (occurrence: US)
  Receive Date: 20221018
  Receipt Date: 20221223
  Transmission Date: 20230112
  Serious: Yes (Other)
  Sender: FDA-Public Use
  Company Number: US-ABBVIE-4164695

PATIENT
  Sex: Male

DRUGS (3)
  1. IMBRUVICA [Suspect]
     Active Substance: IBRUTINIB
     Indication: Chronic lymphocytic leukaemia
     Dosage: LAST ADMIN DATE AUG 2022
     Route: 048
     Dates: start: 202208
  2. IMBRUVICA [Suspect]
     Active Substance: IBRUTINIB
     Indication: Chronic lymphocytic leukaemia
     Route: 048
     Dates: start: 202208
  3. TYLENOL [Concomitant]
     Active Substance: ACETAMINOPHEN
     Indication: Product used for unknown indication

REACTIONS (14)
  - Surgery [Unknown]
  - Full blood count decreased [Unknown]
  - Middle ear effusion [Not Recovered/Not Resolved]
  - Contusion [Recovering/Resolving]
  - Skin cancer [Unknown]
  - Diarrhoea [Unknown]
  - Peripheral swelling [Unknown]
  - Deafness [Unknown]
  - Oedema peripheral [Unknown]
  - COVID-19 [Unknown]
  - Type 2 diabetes mellitus [Unknown]
  - White blood cell count decreased [Unknown]
  - Glycosylated haemoglobin abnormal [Unknown]
  - Arthritis [Unknown]
